FAERS Safety Report 11210811 (Version 1)
Quarter: 2015Q2

REPORT INFORMATION
  Report Type: Spontaneous
  Country: MA (occurrence: MA)
  Receive Date: 20150622
  Receipt Date: 20150622
  Transmission Date: 20150821
  Serious: Yes (Other)
  Sender: FDA-Public Use
  Company Number: PHHY2015MA074013

PATIENT
  Age: 23 Year
  Sex: Female

DRUGS (4)
  1. RIFAMPICIN [Suspect]
     Active Substance: RIFAMPIN
     Indication: PLEURISY
     Dosage: 150 MG
     Route: 065
  2. PYRAZINAMIDE. [Concomitant]
     Active Substance: PYRAZINAMIDE
     Indication: PLEURISY
     Dosage: 400 MG
     Route: 065
  3. ETHAMBUTOL [Concomitant]
     Active Substance: ETHAMBUTOL HYDROCHLORIDE
     Indication: PLEURISY
     Dosage: 300 MG
     Route: 065
  4. ISONIAZIDE [Concomitant]
     Active Substance: ISONIAZID
     Indication: PLEURISY
     Dosage: 75 MG
     Route: 065

REACTIONS (1)
  - Pancytopenia [Recovered/Resolved]
